FAERS Safety Report 5907518-0 (Version None)
Quarter: 2008Q4

REPORT INFORMATION
  Report Type: 
  Country: None (occurrence: None)
  Receive Date: 20081003
  Receipt Date: 20080929
  Transmission Date: 20090506
  Serious: Yes (Life-Threatening)
  Sender: FDA-Public Use
  Company Number: GB-BRISTOL-MYERS SQUIBB COMPANY-14356646

PATIENT
  Age: 61 Year
  Sex: Female

DRUGS (6)
  1. CYCLOPHOSPHAMIDE [Suspect]
     Indication: BREAST CANCER
     Dosage: THERAPY STARTED ON JUN06.
     Route: 042
     Dates: start: 20060601, end: 20060901
  2. FLUOROURACIL [Suspect]
     Indication: BREAST CANCER
     Route: 042
  3. DOCETAXEL [Suspect]
     Indication: BREAST CANCER
     Route: 065
     Dates: end: 20061101
  4. EPIRUBICIN [Suspect]
     Indication: BREAST CANCER
     Dosage: THERAPY STARTED ON JUN06.
     Route: 042
     Dates: start: 20060601, end: 20060901
  5. LETROZOLE [Suspect]
     Route: 065
  6. PEGFILGRASTIM [Suspect]
     Indication: BREAST CANCER
     Route: 065
     Dates: end: 20061101

REACTIONS (1)
  - PROGRESSIVE MULTIFOCAL LEUKOENCEPHALOPATHY [None]
